FAERS Safety Report 11038627 (Version 1)
Quarter: 2015Q2

REPORT INFORMATION
  Report Type: Spontaneous
  Country: CA (occurrence: None)
  Receive Date: 20150415
  Receipt Date: 20150415
  Transmission Date: 20150821
  Serious: Yes (Hospitalization)
  Sender: FDA-Public Use
  Company Number: FK201501644

PATIENT
  Age: 55 Year
  Sex: Female

DRUGS (1)
  1. CEFTRIAXONE. [Suspect]
     Active Substance: CEFTRIAXONE
     Indication: ENDOCARDITIS BACTERIAL
     Dosage: NOT OTHERWISE SPECIFIED
     Route: 042
     Dates: start: 20150216, end: 20150317

REACTIONS (4)
  - Paraesthesia [None]
  - Catheter site urticaria [None]
  - Pyrexia [None]
  - Pruritus generalised [None]
